FAERS Safety Report 12402041 (Version 1)
Quarter: 2016Q2

REPORT INFORMATION
  Report Type: Spontaneous
  Country: US (occurrence: US)
  Receive Date: 20160525
  Receipt Date: 20160525
  Transmission Date: 20160815
  Serious: Yes (Other)
  Sender: FDA-Public Use
  Company Number: US-SUNOVION-2016SUN001116

PATIENT
  Age: 97 Year
  Sex: Female
  Weight: 68.48 kg

DRUGS (6)
  1. BROVANA [Suspect]
     Active Substance: ARFORMOTEROL TARTRATE
     Indication: EMPHYSEMA
  2. FLUTICASONE PROPIONATE. [Suspect]
     Active Substance: FLUTICASONE PROPIONATE
     Dosage: UNK
     Route: 045
  3. ALBUTEROL. [Concomitant]
     Active Substance: ALBUTEROL
     Dosage: UNK
  4. PLAVIX [Concomitant]
     Active Substance: CLOPIDOGREL BISULFATE
     Indication: ANTICOAGULANT THERAPY
     Dosage: UNK
  5. BROVANA [Suspect]
     Active Substance: ARFORMOTEROL TARTRATE
     Indication: BRONCHITIS CHRONIC
     Dosage: 15MCG/2ML
     Route: 055
  6. BUDESONIDE. [Suspect]
     Active Substance: BUDESONIDE
     Dosage: UNK

REACTIONS (16)
  - Sputum discoloured [Not Recovered/Not Resolved]
  - Retching [Not Recovered/Not Resolved]
  - Haemoptysis [Unknown]
  - Rhinorrhoea [Not Recovered/Not Resolved]
  - Weight decreased [Unknown]
  - Vomiting [Not Recovered/Not Resolved]
  - Rash [Unknown]
  - Pyrexia [Unknown]
  - Productive cough [Not Recovered/Not Resolved]
  - Aphonia [Not Recovered/Not Resolved]
  - Cough [Not Recovered/Not Resolved]
  - Otorrhoea [Not Recovered/Not Resolved]
  - Basal cell carcinoma [Unknown]
  - Necrotising ulcerative gingivostomatitis [Not Recovered/Not Resolved]
  - Increased viscosity of bronchial secretion [Unknown]
  - Nausea [Not Recovered/Not Resolved]

NARRATIVE: CASE EVENT DATE: 201605
